FAERS Safety Report 4765744-0 (Version None)
Quarter: 2005Q3

REPORT INFORMATION
  Report Type: 
  Country: None (occurrence: None)
  Receive Date: 20050906
  Receipt Date: 20050816
  Transmission Date: 20060218
  Serious: Yes (Other)
  Sender: FDA-Public Use
  Company Number: 200507294

PATIENT
  Sex: Female

DRUGS (2)
  1. FLURINOL (EPINASTINE) SYRUP [Suspect]
     Indication: PRURITUS
     Dosage: 20 MG ONCE PO
     Route: 048
     Dates: start: 20050626, end: 20050626
  2. CROTAMITIN [Concomitant]

REACTIONS (2)
  - DYSPNOEA [None]
  - RASH PRURITIC [None]
